FAERS Safety Report 15942948 (Version 1)
Quarter: 2019Q1

REPORT INFORMATION
  Report Type: Spontaneous
  Country: US (occurrence: US)
  Receive Date: 20190117
  Receipt Date: 20190117
  Transmission Date: 20190417
  Serious: Yes (Death)
  Sender: FDA-Public Use
  Company Number: None

PATIENT
  Age: 70 Year
  Sex: Male

DRUGS (2)
  1. ZELBORAF [Suspect]
     Active Substance: VEMURAFENIB
     Indication: MALIGNANT MELANOMA
     Route: 048
     Dates: start: 20180507, end: 201901
  2. COTELLIC [Suspect]
     Active Substance: COBIMETINIB
     Dosage: ?          OTHER FREQUENCY:21 DAYS;?
     Route: 048
     Dates: start: 20180507, end: 201901

REACTIONS (1)
  - Death [None]

NARRATIVE: CASE EVENT DATE: 201901
